FAERS Safety Report 14105037 (Version 2)
Quarter: 2018Q1

REPORT INFORMATION
  Report Type: Spontaneous
  Country: US (occurrence: US)
  Receive Date: 20171018
  Receipt Date: 20180103
  Transmission Date: 20180508
  Serious: Yes (Other)
  Sender: FDA-Public Use
  Company Number: US-SA-2017SA195237

PATIENT
  Age: 38 Year
  Sex: Female
  Weight: 88.45 kg

DRUGS (1)
  1. SODIUM FLUORIDE. [Suspect]
     Active Substance: SODIUM FLUORIDE
     Dosage: LIQUID
     Route: 065
     Dates: start: 201709

REACTIONS (2)
  - Tongue discomfort [Recovered/Resolved]
  - Burn oral cavity [Recovered/Resolved]
